FAERS Safety Report 4499306-X (Version None)
Quarter: 2004Q3

REPORT INFORMATION
  Report Type: 
  Country: None (occurrence: None)
  Receive Date: 20040928
  Receipt Date: 20040727
  Transmission Date: 20050211
  Serious: No
  Sender: FDA-Public Use
  Company Number: 04P-163-0268382-00

PATIENT
  Age: 46 Year
  Sex: Male
  Weight: 95.2554 kg

DRUGS (6)
  1. HUMIRA [Suspect]
     Indication: OSTEOARTHRITIS
     Dosage: 40 MG, 1 IN 2 WK, SUBCUTANEOUS
     Route: 058
     Dates: start: 20040501, end: 20040707
  2. HUMIRA [Suspect]
     Indication: RHEUMATOID ARTHRITIS
     Dosage: 40 MG, 1 IN 2 WK, SUBCUTANEOUS
     Route: 058
     Dates: start: 20040501, end: 20040707
  3. METHOTREXATE [Concomitant]
  4. LEFLUNOMIDE [Concomitant]
  5. ROFECOXIB [Concomitant]
  6. PREDNISONE [Concomitant]

REACTIONS (3)
  - ARTHRALGIA [None]
  - BACK PAIN [None]
  - CHEST PAIN [None]
